FAERS Safety Report 11894347 (Version 1)
Quarter: 2016Q1

REPORT INFORMATION
  Report Type: Spontaneous
  Country: BE (occurrence: BE)
  Receive Date: 20160107
  Receipt Date: 20160107
  Transmission Date: 20160526
  Serious: Yes (Hospitalization)
  Sender: FDA-Public Use
  Company Number: BE-BRISTOL-MYERS SQUIBB COMPANY-BMS-2015-082628

PATIENT
  Age: 45 Year
  Sex: Male

DRUGS (1)
  1. ELOTUZUMAB [Suspect]
     Active Substance: ELOTUZUMAB
     Indication: PLASMA CELL MYELOMA
     Dosage: 10 MG/M2, QCYCLE
     Route: 042
     Dates: start: 201510

REACTIONS (3)
  - Hypertension [Unknown]
  - Hyperhidrosis [Unknown]
  - Dyspnoea [Unknown]
